FAERS Safety Report 6681991-5 (Version None)
Quarter: 2010Q2

REPORT INFORMATION
  Report Type: 
  Country: None (occurrence: None)
  Receive Date: 20100414
  Receipt Date: 20100414
  Transmission Date: 20101027
  Serious: No
  Sender: FDA-Public Use
  Company Number: None

PATIENT
  Sex: Female
  Weight: 49.8957 kg

DRUGS (1)
  1. HALFLYTELY [Suspect]
     Dosage: 8 OZ
     Dates: start: 20100331

REACTIONS (2)
  - ABDOMINAL DISTENSION [None]
  - VOMITING [None]
